FAERS Safety Report 8762773 (Version 5)
Quarter: 2013Q1

REPORT INFORMATION
  Report Type: Spontaneous
  Country: US (occurrence: US)
  Receive Date: 20120830
  Receipt Date: 20130118
  Transmission Date: 20140127
  Serious: Yes (Hospitalization)
  Sender: FDA-Public Use
  Company Number: US-PFIZER INC-2012210042

PATIENT
  Age: 67 Year
  Sex: Male
  Weight: 96.6 kg

DRUGS (10)
  1. SUTENT [Suspect]
     Indication: RENAL CELL CARCINOMA
     Dosage: 50 MG, 1X/DAY, 4 WEEKS ON/2 WEEKS OFF
     Route: 048
     Dates: start: 20120809
  2. CARAFATE [Concomitant]
     Dosage: UNK, BEFORE MEALS
  3. METFORMIN [Concomitant]
     Dosage: 500 MG, 2X/DAY
  4. LIPITOR [Concomitant]
     Dosage: 40 MG, UNK
  5. TEKTURNA [Concomitant]
     Indication: BLOOD PRESSURE
     Dosage: 300 MG, 1X/DAY
  6. NEXIUM [Concomitant]
     Dosage: 40 MG, 2X/DAY
  7. ASPIRIN [Concomitant]
     Dosage: 81 MG, UNK
  8. CO-Q-10 [Concomitant]
     Dosage: UNK
  9. FENTANYL [Concomitant]
     Indication: PAIN
     Dosage: UNK, AS NEEDED
  10. HYDROCODONE [Concomitant]
     Indication: PAIN
     Dosage: UNK, AS NEEDED

REACTIONS (7)
  - Gallbladder disorder [Recovered/Resolved]
  - Back pain [Not Recovered/Not Resolved]
  - Influenza [Recovered/Resolved]
  - Vomiting [Recovered/Resolved]
  - Diarrhoea [Recovered/Resolved]
  - Disease progression [Unknown]
  - Renal cell carcinoma [Unknown]
